FAERS Safety Report 5565569-2 (Version None)
Quarter: 2007Q4

REPORT INFORMATION
  Report Type: 
  Country: None (occurrence: None)
  Receive Date: 20071218
  Receipt Date: 20051206
  Transmission Date: 20080405
  Serious: Yes (Death, Congenital Anomaly)
  Sender: FDA-Public Use
  Company Number: US-ROCHE-427720

PATIENT
  Sex: Male
  Weight: 3.3 kg

DRUGS (1)
  1. ACCUTANE [Suspect]

REACTIONS (14)
  - ANOMALY OF EXTERNAL EAR CONGENITAL [None]
  - CONGENITAL NOSE MALFORMATION [None]
  - DEATH [None]
  - DYSMORPHISM [None]
  - EAR MALFORMATION [None]
  - EXTERNAL EAR DISORDER [None]
  - HEAD DEFORMITY [None]
  - HEART DISEASE CONGENITAL [None]
  - HYDROCEPHALUS [None]
  - LOW SET EARS [None]
  - MICROGNATHIA [None]
  - MICROPHTHALMOS [None]
  - MUSCULOSKELETAL DISORDER [None]
  - NASAL DISORDER [None]
